FAERS Safety Report 17331827 (Version 3)
Quarter: 2020Q1

REPORT INFORMATION
  Report Type: Spontaneous
  Country: US (occurrence: US)
  Receive Date: 20200128
  Receipt Date: 20200324
  Transmission Date: 20200409
  Serious: No
  Sender: FDA-Public Use
  Company Number: US-009507513-2001USA009627

PATIENT
  Sex: Male

DRUGS (2)
  1. ASMANEX [Suspect]
     Active Substance: MOMETASONE FUROATE
     Dosage: 1 PUFF IN THE MORNING AND 1 PUFF AT NIGHT,60 DOSE INHALER
     Route: 055
     Dates: start: 201701, end: 202001
  2. ASMANEX [Suspect]
     Active Substance: MOMETASONE FUROATE
     Dosage: 1 PUFF IN THE MORNING AND 1 PUFF AT NIGHT,60 DOSE INHALER
     Route: 055
     Dates: start: 20200126

REACTIONS (3)
  - No adverse event [Unknown]
  - Product container issue [Unknown]
  - Product dose omission [Unknown]

NARRATIVE: CASE EVENT DATE: 20200126
